FAERS Safety Report 22520702 (Version 1)
Quarter: 2023Q2

REPORT INFORMATION
  Report Type: Report from Study
  Country: US (occurrence: US)
  Receive Date: 20230605
  Receipt Date: 20230605
  Transmission Date: 20230721
  Serious: Yes (Other)
  Sender: FDA-Public Use
  Company Number: US-BRISTOL-MYERS SQUIBB COMPANY-2023-078445

PATIENT
  Age: 47 Year
  Sex: Female

DRUGS (3)
  1. ZEPOSIA [Suspect]
     Active Substance: OZANIMOD HYDROCHLORIDE
     Indication: Multiple sclerosis
     Route: 048
     Dates: start: 20210820, end: 202304
  2. VUMERITY [Concomitant]
     Active Substance: DIROXIMEL FUMARATE
  3. COPAXONE [Concomitant]
     Active Substance: GLATIRAMER ACETATE

REACTIONS (3)
  - Lymphocyte count decreased [Unknown]
  - Arthralgia [Recovering/Resolving]
  - Breast cancer [Unknown]

NARRATIVE: CASE EVENT DATE: 20230401
